FAERS Safety Report 9387242 (Version 18)
Quarter: 2015Q3

REPORT INFORMATION
  Report Type: Report from Study
  Country: CN (occurrence: CN)
  Receive Date: 20130708
  Receipt Date: 20150930
  Transmission Date: 20151125
  Serious: Yes (Death, Hospitalization)
  Sender: FDA-Public Use
  Company Number: CN-ROCHE-1245008

PATIENT
  Age: 74 Year
  Sex: Male
  Weight: 68 kg

DRUGS (2)
  1. AVASTIN [Suspect]
     Active Substance: BEVACIZUMAB
     Route: 041
     Dates: start: 20140506, end: 20150815
  2. AVASTIN [Suspect]
     Active Substance: BEVACIZUMAB
     Indication: COLON CANCER
     Route: 041
     Dates: start: 20121119

REACTIONS (13)
  - Vomiting [Unknown]
  - Diarrhoea [Unknown]
  - Abnormal faeces [Unknown]
  - General physical health deterioration [Unknown]
  - Pyrexia [Unknown]
  - Nasopharyngitis [Unknown]
  - Labile blood pressure [Unknown]
  - Neoplasm progression [Fatal]
  - Blood bilirubin increased [Unknown]
  - Bone marrow failure [Unknown]
  - Oedema peripheral [Recovering/Resolving]
  - Platelet count decreased [Recovering/Resolving]
  - Blood albumin decreased [Recovered/Resolved]

NARRATIVE: CASE EVENT DATE: 20130511
